FAERS Safety Report 16861033 (Version 3)
Quarter: 2019Q4

REPORT INFORMATION
  Report Type: Spontaneous
  Country: US (occurrence: US)
  Receive Date: 20190927
  Receipt Date: 20191004
  Transmission Date: 20200122
  Serious: Yes (Death, Hospitalization, Other)
  Sender: FDA-Public Use
  Company Number: US-JNJFOC-20190934936

PATIENT
  Age: 84 Year
  Sex: Male

DRUGS (1)
  1. IBRUTINIB UNSPECIFIED [Suspect]
     Active Substance: IBRUTINIB
     Indication: PRODUCT USED FOR UNKNOWN INDICATION
     Route: 048

REACTIONS (6)
  - Sepsis [Fatal]
  - Incorrect dose administered [Unknown]
  - Off label use [Unknown]
  - Rib fracture [Unknown]
  - Fall [Unknown]
  - Escherichia infection [Unknown]

NARRATIVE: CASE EVENT DATE: 20190910
